FAERS Safety Report 25384384 (Version 1)
Quarter: 2025Q2

REPORT INFORMATION
  Report Type: Spontaneous
  Country: US (occurrence: US)
  Receive Date: 20250602
  Receipt Date: 20250602
  Transmission Date: 20250717
  Serious: No
  Sender: ROCHE
  Company Number: US-CHEPLA-2025006428

PATIENT
  Age: 51 Year
  Sex: Female

DRUGS (10)
  1. VALGANCICLOVIR [Suspect]
     Active Substance: VALGANCICLOVIR
     Indication: Antiviral prophylaxis
     Route: 048
  2. VALGANCICLOVIR [Suspect]
     Active Substance: VALGANCICLOVIR
     Route: 048
  3. GANCICLOVIR [Suspect]
     Active Substance: GANCICLOVIR
     Indication: Cytomegalovirus colitis
     Route: 042
  4. GANCICLOVIR [Suspect]
     Active Substance: GANCICLOVIR
     Indication: Cytomegalovirus viraemia
     Dosage: DOSE INCREASED
     Route: 042
  5. MARIBAVIR [Concomitant]
     Active Substance: MARIBAVIR
     Indication: Cytomegalovirus viraemia
     Route: 048
  6. SULFAMETHOXAZOLE\TRIMETHOPRIM [Concomitant]
     Active Substance: SULFAMETHOXAZOLE\TRIMETHOPRIM
     Route: 065
  7. FOSCARNET [Concomitant]
     Active Substance: FOSCARNET
     Route: 042
  8. TACROLIMUS [Concomitant]
     Active Substance: TACROLIMUS
     Indication: Immunosuppression
     Route: 065
  9. PREDNISONE [Concomitant]
     Active Substance: PREDNISONE
     Indication: Immunosuppression
     Route: 065
  10. MYCOPHENOLIC ACID [Concomitant]
     Active Substance: MYCOPHENOLIC ACID
     Indication: Immunosuppression
     Route: 065

REACTIONS (2)
  - Drug ineffective [Unknown]
  - Drug resistance [Unknown]
